FAERS Safety Report 8392386-0 (Version None)
Quarter: 2012Q2

REPORT INFORMATION
  Report Type: 
  Country: None (occurrence: None)
  Receive Date: 20120529
  Receipt Date: 20120524
  Transmission Date: 20120825
  Serious: Yes (Other)
  Sender: FDA-Public Use
  Company Number: US-ACTELION-A-NJ2012-65754

PATIENT

DRUGS (3)
  1. PLAVIX [Concomitant]
  2. TRACLEER [Suspect]
     Indication: PULMONARY ARTERIAL HYPERTENSION
     Dosage: UNK
     Route: 048
     Dates: start: 20080725
  3. CALCIUM CHANNEL BLOCKERS [Concomitant]

REACTIONS (5)
  - METASTASES TO LIVER [None]
  - DRUG DOSE OMISSION [None]
  - METASTASES TO CENTRAL NERVOUS SYSTEM [None]
  - METASTASES TO LUNG [None]
  - COLON CANCER METASTATIC [None]
